FAERS Safety Report 9042785 (Version 3)
Quarter: 2013Q2

REPORT INFORMATION
  Report Type: Spontaneous
  Country: US (occurrence: US)
  Receive Date: 20130129
  Receipt Date: 20130501
  Transmission Date: 20140414
  Serious: Yes (Hospitalization, Other)
  Sender: FDA-Public Use
  Company Number: US-ABBOTT-13P-163-1038823-00

PATIENT
  Age: 53 Year
  Sex: Male

DRUGS (1)
  1. LUCRIN [Suspect]
     Indication: PROSTATE CANCER
     Dosage: UNKNOWN, RECEIVED 7 DOSES
     Route: 050
     Dates: start: 201105

REACTIONS (8)
  - Ketoacidosis [Recovered/Resolved]
  - Injection site swelling [Recovered/Resolved]
  - Injection site pain [Recovered/Resolved]
  - Injection site pain [Recovered/Resolved]
  - Injection site abscess [Recovered/Resolved]
  - Injection site abscess [Recovered/Resolved]
  - Diabetes mellitus inadequate control [Recovered/Resolved]
  - Hypersensitivity [Recovered/Resolved]
